FAERS Safety Report 9804806 (Version 2)
Quarter: 2014Q1

REPORT INFORMATION
  Report Type: Spontaneous
  Country: US (occurrence: US)
  Receive Date: 20140108
  Receipt Date: 20140124
  Transmission Date: 20141002
  Serious: Yes (Death, Hospitalization, Other)
  Sender: FDA-Public Use
  Company Number: US-BAXTER-2014BAX000118

PATIENT
  Sex: Male

DRUGS (1)
  1. DIANEAL LOW CALCIUM (ULTRABAG) [Suspect]
     Indication: PERITONEAL DIALYSIS
     Route: 033
     Dates: end: 20131230

REACTIONS (6)
  - Death [Fatal]
  - Myocardial infarction [Unknown]
  - Brain injury [Unknown]
  - Panic attack [Unknown]
  - Diabetic foot [Unknown]
  - Impaired healing [Unknown]
